FAERS Safety Report 5025576-5 (Version None)
Quarter: 2006Q2

REPORT INFORMATION
  Report Type: 
  Country: None (occurrence: None)
  Receive Date: 20060426
  Receipt Date: 20051230
  Transmission Date: 20061013
  Serious: Yes (Other)
  Sender: FDA-Public Use
  Company Number: 2006002760

PATIENT
  Age: 60 Year
  Sex: Female
  Weight: 145.151 kg

DRUGS (22)
  1. LYRICA [Suspect]
     Indication: DIABETIC NEUROPATHY
     Dosage: 100 MG (50 MG, 2 IN 1 D)
     Dates: start: 20051223, end: 20051227
  2. MS CONTIN [Concomitant]
  3. POTASSIUM (POTASSIUM) [Concomitant]
  4. LASIX [Concomitant]
  5. XANAX [Concomitant]
  6. ZOLOFT [Concomitant]
  7. TYLENOL PM (DIPHENHYDRAMINE, PARACETAMOL) [Concomitant]
  8. COLACE (DOCUSATE SODIUM) [Concomitant]
  9. LEVOTHYROXINE SODIUM [Concomitant]
  10. MULTIVITAMIN [Concomitant]
  11. ALLOPURINOL [Concomitant]
  12. DIGOXIN [Concomitant]
  13. LISINOPRIL [Concomitant]
  14. ATENOLOL [Concomitant]
  15. ZANTAC [Concomitant]
  16. WARFARIN SODIUM [Concomitant]
  17. ZOCOR [Concomitant]
  18. TRAZODONE HCL [Concomitant]
  19. NORVASC [Concomitant]
  20. IMDUR [Concomitant]
  21. ALDACTONE [Concomitant]
  22. ACETYLSALICYLIC ACID ENTERIC COATED (ACETYLSALICYLIC ACID) [Concomitant]

REACTIONS (2)
  - CONFUSIONAL STATE [None]
  - MUSCULAR WEAKNESS [None]
